FAERS Safety Report 25180947 (Version 1)
Quarter: 2025Q2

REPORT INFORMATION
  Report Type: Report from Study
  Country: MX (occurrence: MX)
  Receive Date: 20250409
  Receipt Date: 20250409
  Transmission Date: 20250717
  Serious: Yes (Hospitalization)
  Sender: ABBVIE
  Company Number: MX-ABBVIE-6218613

PATIENT
  Age: 54 Year
  Sex: Male
  Weight: 82 kg

DRUGS (1)
  1. UPADACITINIB [Suspect]
     Active Substance: UPADACITINIB
     Indication: Dermatitis atopic
     Dosage: FORM STRENGTH15 MILLIGRAM
     Route: 048
     Dates: start: 20241030

REACTIONS (2)
  - Nephrolithiasis [Unknown]
  - Renal pain [Unknown]

NARRATIVE: CASE EVENT DATE: 20250405
